FAERS Safety Report 16291712 (Version 2)
Quarter: 2019Q3

REPORT INFORMATION
  Report Type: Report from Study
  Country: US (occurrence: US)
  Receive Date: 20190509
  Receipt Date: 20190709
  Transmission Date: 20191004
  Serious: Yes (Other)
  Sender: FDA-Public Use
  Company Number: US-RETROPHIN, INC.-2019RTN00032

PATIENT
  Sex: Female

DRUGS (2)
  1. CHOLIC ACID [Suspect]
     Active Substance: CHOLIC ACID
     Indication: XANTHOMATOSIS
     Dosage: 750 MG, 1X/DAY
     Route: 048
     Dates: start: 201510
  2. CHOLIC ACID (INVESTIGATIONAL DRUG) [Suspect]
     Active Substance: CHOLIC ACID
     Indication: XANTHOMATOSIS
     Dosage: 750 MG, 1X/DAY
     Dates: start: 20140204, end: 201510

REACTIONS (4)
  - Rash vesicular [Unknown]
  - Seizure [Unknown]
  - Muscle contractions involuntary [Unknown]
  - Skin ulcer [Unknown]
